FAERS Safety Report 7345065-2 (Version None)
Quarter: 2011Q1

REPORT INFORMATION
  Report Type: 
  Country: None (occurrence: None)
  Receive Date: 20110310
  Receipt Date: 20110228
  Transmission Date: 20110831
  Serious: Yes (Hospitalization, Other)
  Sender: FDA-Public Use
  Company Number: US-ELI_LILLY_AND_COMPANY-US200909003620

PATIENT
  Sex: Female

DRUGS (9)
  1. CALCIUM [Concomitant]
  2. METOPROLOL [Concomitant]
  3. SIMVASTATIN [Concomitant]
  4. ASPIRIN [Concomitant]
  5. LEVOTHYROXINE [Concomitant]
  6. FORTEO [Suspect]
     Indication: OSTEOPOROSIS
     Dosage: 20 UG, DAILY (1/D)
     Route: 065
     Dates: start: 20080101, end: 20100311
  7. FORTEO [Suspect]
     Dosage: 20 UG, DAILY (1/D)
     Dates: start: 20100315, end: 20101115
  8. FORTEO [Suspect]
     Dosage: 20 UG, DAILY (1/D)
     Dates: start: 20101119
  9. LISINOPRIL [Concomitant]

REACTIONS (7)
  - HIP SURGERY [None]
  - WRIST FRACTURE [None]
  - TOOTH INJURY [None]
  - FALL [None]
  - ARTHRALGIA [None]
  - HERNIA REPAIR [None]
  - UPPER LIMB FRACTURE [None]
